FAERS Safety Report 8732462 (Version 2)
Quarter: 2015Q2

REPORT INFORMATION
  Report Type: Report from Study
  Country: US (occurrence: US)
  Receive Date: 20120820
  Receipt Date: 20150626
  Transmission Date: 20150821
  Serious: Yes (Hospitalization, Other)
  Sender: FDA-Public Use
  Company Number: US-ROCHE-1100975

PATIENT
  Sex: Male

DRUGS (25)
  1. QUINIDINE [Concomitant]
     Active Substance: QUINIDINE
     Route: 048
  2. PHENERGAN [Concomitant]
     Active Substance: PROMETHAZINE HYDROCHLORIDE
     Route: 042
  3. DALMANE [Concomitant]
     Active Substance: FLURAZEPAM HYDROCHLORIDE
     Route: 048
  4. CODEINE [Concomitant]
     Active Substance: CODEINE
     Indication: PAIN
     Route: 048
  5. HEPARIN [Concomitant]
     Active Substance: HEPARIN SODIUM
     Route: 065
  6. DIGOXIN. [Concomitant]
     Active Substance: DIGOXIN
     Route: 042
  7. BENADRYL [Concomitant]
     Active Substance: DIPHENHYDRAMINE HYDROCHLORIDE
     Route: 048
  8. NITROGLYCERIN. [Concomitant]
     Active Substance: NITROGLYCERIN
     Route: 065
  9. MORPHINE SULFATE. [Concomitant]
     Active Substance: MORPHINE SULFATE
     Indication: CHEST PAIN
     Route: 041
  10. MAGNESIUM HYDROXIDE. [Concomitant]
     Active Substance: MAGNESIUM HYDROXIDE
     Dosage: 30 CC PRN
     Route: 048
  11. VALIUM [Concomitant]
     Active Substance: DIAZEPAM
     Route: 048
  12. INDOCIN [Concomitant]
     Active Substance: INDOMETHACIN\INDOMETHACIN SODIUM
     Route: 065
  13. CARAFATE [Concomitant]
     Active Substance: SUCRALFATE
     Route: 048
  14. ACTIVASE [Suspect]
     Active Substance: ALTEPLASE
     Indication: ACUTE MYOCARDIAL INFARCTION
     Route: 042
  15. ACTIVASE [Suspect]
     Active Substance: ALTEPLASE
     Route: 042
  16. LIDOCAINE. [Concomitant]
     Active Substance: LIDOCAINE
     Route: 065
  17. PROCAINAMIDE [Concomitant]
     Active Substance: PROCAINAMIDE HYDROCHLORIDE
     Route: 048
  18. NITROGLYCERIN. [Concomitant]
     Active Substance: NITROGLYCERIN
     Indication: CHEST PAIN
     Dosage: 1/150
     Route: 060
  19. NITRO-DUR [Concomitant]
     Active Substance: NITROGLYCERIN
     Route: 065
  20. LASIX [Concomitant]
     Active Substance: FUROSEMIDE
     Route: 042
  21. VALIUM [Concomitant]
     Active Substance: DIAZEPAM
     Route: 048
  22. NITROGLYCERIN. [Concomitant]
     Active Substance: NITROGLYCERIN
     Route: 065
  23. LIDOCAINE. [Concomitant]
     Active Substance: LIDOCAINE
     Route: 065
  24. TYLENOL [Concomitant]
     Active Substance: ACETAMINOPHEN
     Route: 048
  25. ATROPINE [Concomitant]
     Active Substance: ATROPINE
     Route: 058

REACTIONS (4)
  - Supraventricular tachycardia [Unknown]
  - General symptom [Unknown]
  - Hypotension [Unknown]
  - Ventricular arrhythmia [Unknown]
